FAERS Safety Report 25362399 (Version 2)
Quarter: 2025Q2

REPORT INFORMATION
  Report Type: Spontaneous
  Country: US (occurrence: US)
  Receive Date: 20250527
  Receipt Date: 20250613
  Transmission Date: 20250716
  Serious: No
  Sender: EISAI
  Company Number: US-Eisai-EC-2025-189169

PATIENT
  Sex: Female

DRUGS (3)
  1. LEQEMBI [Suspect]
     Active Substance: LECANEMAB-IRMB
     Indication: Cognitive disorder
  2. LEQEMBI [Suspect]
     Active Substance: LECANEMAB-IRMB
     Indication: Dementia Alzheimer^s type
     Dates: start: 20250410, end: 20250410
  3. LEQEMBI [Suspect]
     Active Substance: LECANEMAB-IRMB
     Dates: start: 202505

REACTIONS (3)
  - Dizziness [Recovered/Resolved]
  - Nausea [Recovered/Resolved]
  - Infusion related reaction [Recovered/Resolved]

NARRATIVE: CASE EVENT DATE: 20250410
